FAERS Safety Report 10529944 (Version 1)
Quarter: 2014Q4

REPORT INFORMATION
  Report Type: Spontaneous
  Country: GB (occurrence: None)
  Receive Date: 20141017
  Receipt Date: 20141017
  Transmission Date: 20150528
  Serious: Yes (Death, Hospitalization, Other)
  Sender: FDA-Public Use
  Company Number: 2014SCAL000183

PATIENT
  Age: 76 Year
  Sex: Male

DRUGS (4)
  1. SALMETEROL XINAFOATE(SALMETEROL XINAFOATE) [Concomitant]
  2. FLUTICASONE PROPIONATE(FLUTICASONE PROPIONATE) [Concomitant]
  3. DIGOXIN/00545901/(BETA-ACTYLDIGOXIN) [Concomitant]
  4. THEOPHYLLINE [Suspect]
     Active Substance: THEOPHYLLINE ANHYDROUS
     Indication: CHRONIC OBSTRUCTIVE PULMONARY DISEASE

REACTIONS (7)
  - Generalised tonic-clonic seizure [None]
  - Facial spasm [None]
  - Toxicity to various agents [None]
  - Malaise [None]
  - Urinary tract infection [None]
  - Muscle twitching [None]
  - Sepsis [None]
